FAERS Safety Report 5452381-8 (Version None)
Quarter: 2007Q3

REPORT INFORMATION
  Report Type: 
  Country: None (occurrence: None)
  Receive Date: 20070914
  Receipt Date: 20070906
  Transmission Date: 20080115
  Serious: Yes (Hospitalization, Other)
  Sender: FDA-Public Use
  Company Number: JP-ABBOTT-07P-087-0415587-00

PATIENT
  Age: 37 Year
  Sex: Female

DRUGS (2)
  1. SEVOFLURANE [Suspect]
     Indication: ANAESTHESIA
     Route: 055
  2. ROPIVACAINE [Suspect]
     Indication: EPIDURAL ANAESTHESIA
     Dosage: 5 ML OF 5% ROPIVACAINE
     Route: 008

REACTIONS (1)
  - PERIPHERAL NERVE INJURY [None]
